FAERS Safety Report 11796954 (Version 7)
Quarter: 2018Q1

REPORT INFORMATION
  Report Type: Report from Study
  Country: CO (occurrence: CO)
  Receive Date: 20151203
  Receipt Date: 20180227
  Transmission Date: 20180508
  Serious: Yes (Death, Hospitalization, Other)
  Sender: FDA-Public Use
  Company Number: PHHY2015CO157978

PATIENT
  Age: 69 Year
  Sex: Female
  Weight: 46 kg

DRUGS (4)
  1. AFINITOR [Suspect]
     Active Substance: EVEROLIMUS
     Indication: RENAL CANCER
  2. EXEMESTANE. [Concomitant]
     Active Substance: EXEMESTANE
     Indication: PRODUCT USED FOR UNKNOWN INDICATION
     Dosage: UNK
     Route: 065
  3. AFINITOR [Suspect]
     Active Substance: EVEROLIMUS
     Indication: BREAST CANCER
     Dosage: 10 MG, QD
     Route: 048
     Dates: start: 20140207, end: 20171228
  4. AFINITOR [Suspect]
     Active Substance: EVEROLIMUS
     Indication: NEUROENDOCRINE TUMOUR

REACTIONS (47)
  - Blood creatinine increased [Unknown]
  - Scoliosis [Unknown]
  - Hypoxia [Unknown]
  - Musculoskeletal chest pain [Unknown]
  - Drug ineffective [Unknown]
  - Empyema [Unknown]
  - Aortic valve sclerosis [Unknown]
  - Hypokinesia [Unknown]
  - Noninfective gingivitis [Unknown]
  - Red blood cell count decreased [Unknown]
  - Chest pain [Unknown]
  - Anaemia [Unknown]
  - Leukocytosis [Unknown]
  - Left ventricular dysfunction [Unknown]
  - Cardiotoxicity [Unknown]
  - Pericardial effusion [Unknown]
  - Weight decreased [Unknown]
  - Fatigue [Unknown]
  - Dyspnoea [Unknown]
  - Vomiting [Unknown]
  - Neoplasm [Unknown]
  - Depressed mood [Unknown]
  - Eating disorder [Unknown]
  - Lung neoplasm [Unknown]
  - Heart rate increased [Unknown]
  - Tachypnoea [Unknown]
  - Dyspnoea at rest [Unknown]
  - Blood lactate dehydrogenase increased [Unknown]
  - Neutrophilia [Unknown]
  - Complication associated with device [Unknown]
  - Muscular weakness [Unknown]
  - Ejection fraction decreased [Unknown]
  - Bone density decreased [Unknown]
  - Pyrexia [Unknown]
  - Nosocomial infection [Unknown]
  - Cytogenetic analysis abnormal [Unknown]
  - Back pain [Unknown]
  - Metastasis [Fatal]
  - Breath sounds abnormal [Unknown]
  - Adenosine deaminase increased [Unknown]
  - Regurgitation [Unknown]
  - Paraneoplastic pleural effusion [Unknown]
  - Asthenia [Unknown]
  - Breast cancer recurrent [Unknown]
  - Renal cancer recurrent [Unknown]
  - Metastases to lung [Unknown]
  - Metastases to kidney [Unknown]

NARRATIVE: CASE EVENT DATE: 20170701
